FAERS Safety Report 5088354-7 (Version None)
Quarter: 2006Q3

REPORT INFORMATION
  Report Type: 
  Country: None (occurrence: None)
  Receive Date: 20060822
  Receipt Date: 20060814
  Transmission Date: 20061208
  Serious: Yes (Death)
  Sender: FDA-Public Use
  Company Number: 2006US001779

PATIENT
  Age: 90 Year
  Sex: Female

DRUGS (8)
  1. AMBISOME [Suspect]
     Indication: LEISHMANIASIS
     Dosage: 200 MG, UID/QD, IV NOS
     Route: 042
     Dates: start: 20060720, end: 20060720
  2. MONOTILDIEM (DILTIAZEM) [Concomitant]
  3. PLAVIX [Concomitant]
  4. PRAVASTATIN [Concomitant]
  5. TEGRETOL [Concomitant]
  6. IKOREL (NICORANDIL) [Concomitant]
  7. RAMIPRIL [Concomitant]
  8. LOVENOX [Concomitant]

REACTIONS (3)
  - CARDIAC ARREST [None]
  - MALAISE [None]
  - POST PROCEDURAL COMPLICATION [None]
